FAERS Safety Report 24212247 (Version 1)
Quarter: 2024Q3

REPORT INFORMATION
  Report Type: Report from Study
  Country: US (occurrence: None)
  Receive Date: 20240815
  Receipt Date: 20240815
  Transmission Date: 20241017
  Serious: Yes (Other)
  Sender: ASTRAZENECA
  Company Number: 2023A104172

PATIENT

DRUGS (1)
  1. BYDUREON BCISE [Suspect]
     Active Substance: EXENATIDE

REACTIONS (5)
  - Metastases to bone [Unknown]
  - Neoplasm [Unknown]
  - Insulin resistant diabetes [Unknown]
  - Polycystic ovarian syndrome [Unknown]
  - Chronic kidney disease [Unknown]
